FAERS Safety Report 13772400 (Version 1)
Quarter: 2017Q3

REPORT INFORMATION
  Report Type: Report from Study
  Country: US (occurrence: US)
  Receive Date: 20170720
  Receipt Date: 20170720
  Transmission Date: 20171127
  Serious: Yes (Other)
  Sender: FDA-Public Use
  Company Number: US-BAYER-2017-134649

PATIENT
  Age: 2 Year
  Sex: Male

DRUGS (1)
  1. BAYER ASPIRIN [Suspect]
     Active Substance: ASPIRIN
     Dosage: UNK

REACTIONS (5)
  - Product use issue [None]
  - Suspected counterfeit product [None]
  - Anxiety [None]
  - Intestinal haemorrhage [Unknown]
  - General physical health deterioration [Unknown]
